FAERS Safety Report 23579982 (Version 1)
Quarter: 2024Q1

REPORT INFORMATION
  Report Type: Spontaneous
  Country: US (occurrence: US)
  Receive Date: 20240229
  Receipt Date: 20240229
  Transmission Date: 20240410
  Serious: Yes (Other)
  Sender: FDA-Public Use
  Company Number: US-BAYER-2024A030370

PATIENT
  Sex: Male
  Weight: 90 kg

DRUGS (18)
  1. ASPIRIN [Suspect]
     Active Substance: ASPIRIN
  2. WARFARIN SODIUM [Interacting]
     Active Substance: WARFARIN SODIUM
  3. HEPARIN [Interacting]
     Active Substance: HEPARIN SODIUM
  4. PROGESTERONE [Concomitant]
     Active Substance: PROGESTERONE
  5. ESTRADIOL [Concomitant]
     Active Substance: ESTRADIOL
  6. FERROUS SULFATE [Concomitant]
     Active Substance: FERROUS SULFATE
  7. LINEZOLID [Concomitant]
     Active Substance: LINEZOLID
  8. DIPHENHYDRAMINE [Concomitant]
     Active Substance: DIPHENHYDRAMINE
  9. SODIUM CHLORIDE [Concomitant]
     Active Substance: SODIUM CHLORIDE
  10. TYLENOL [Concomitant]
     Active Substance: ACETAMINOPHEN
  11. SODIUM CHLORIDE [Concomitant]
     Active Substance: SODIUM CHLORIDE
  12. ALDURAZYME [Concomitant]
     Active Substance: LARONIDASE
     Indication: Mucopolysaccharidosis
     Dosage: UNK UNK, Q2WK
     Route: 042
     Dates: start: 20230214
  13. EPINEPHRINE [Concomitant]
     Active Substance: EPINEPHRINE
  14. LIDOCAINE [Concomitant]
     Active Substance: LIDOCAINE
  15. METOPROLOL SUCCINATE [Concomitant]
     Active Substance: METOPROLOL SUCCINATE
  16. ALBUTEROL SULFATE [Concomitant]
     Active Substance: ALBUTEROL SULFATE
  17. LATANOPROST [Concomitant]
     Active Substance: LATANOPROST
  18. SPIRONOLACTONE [Concomitant]
     Active Substance: SPIRONOLACTONE

REACTIONS (5)
  - Infection [None]
  - Pseudomonas infection [None]
  - Staphylococcal infection [None]
  - Haemorrhage [None]
  - Labelled drug-drug interaction issue [None]
